FAERS Safety Report 5750932-7 (Version None)
Quarter: 2008Q2

REPORT INFORMATION
  Report Type: 
  Country: None (occurrence: None)
  Receive Date: 20080528
  Receipt Date: 20080520
  Transmission Date: 20081010
  Serious: Yes (Other)
  Sender: FDA-Public Use
  Company Number: CH-MERCK-0805CHE00008

PATIENT
  Sex: Male

DRUGS (2)
  1. EMEND [Suspect]
     Indication: NAUSEA
     Route: 065
  2. FLUOROURACIL [Suspect]
     Route: 065

REACTIONS (1)
  - DRUG TOXICITY [None]
